FAERS Safety Report 6019605-X (Version None)
Quarter: 2008Q4

REPORT INFORMATION
  Report Type: 
  Country: None (occurrence: None)
  Receive Date: 20081224
  Receipt Date: 20081222
  Transmission Date: 20090506
  Serious: Yes (Life-Threatening, Hospitalization, Other)
  Sender: FDA-Public Use
  Company Number: PHHY2008JP12368

PATIENT
  Sex: Female
  Weight: 59 kg

DRUGS (2)
  1. LUDIOMIL [Suspect]
     Indication: DEPRESSION
     Dosage: 10 MG, TID
     Route: 048
     Dates: end: 20080616
  2. LUDIOMIL [Suspect]
     Dosage: UNK
     Route: 048
     Dates: start: 20080617, end: 20080617

REACTIONS (15)
  - ALTERED STATE OF CONSCIOUSNESS [None]
  - BLOOD GLUCOSE INCREASED [None]
  - CARDIO-RESPIRATORY ARREST [None]
  - CARDIOVERSION [None]
  - DYSPHAGIA [None]
  - DYSPHONIA [None]
  - ENDOTRACHEAL INTUBATION [None]
  - HYPOTENSION [None]
  - LIVER FUNCTION TEST ABNORMAL [None]
  - MECHANICAL VENTILATION [None]
  - NEUROLEPTIC MALIGNANT SYNDROME [None]
  - ORAL DISCHARGE [None]
  - OVERDOSE [None]
  - PYREXIA [None]
  - VENTRICULAR TACHYCARDIA [None]
